FAERS Safety Report 8443725-3 (Version None)
Quarter: 2012Q2

REPORT INFORMATION
  Report Type: 
  Country: None (occurrence: None)
  Receive Date: 20120618
  Receipt Date: 20120608
  Transmission Date: 20120825
  Serious: Yes (Hospitalization)
  Sender: FDA-Public Use
  Company Number: US-ELI_LILLY_AND_COMPANY-US201206003707

PATIENT
  Sex: Male

DRUGS (2)
  1. ZYPREXA [Suspect]
     Dosage: 5 MG, EACH MORNING
  2. ZYPREXA [Suspect]
     Dosage: 15 MG, EACH EVENING

REACTIONS (3)
  - FATIGUE [None]
  - CONSTIPATION [None]
  - GALLBLADDER OPERATION [None]
